FAERS Safety Report 22257075 (Version 2)
Quarter: 2023Q2

REPORT INFORMATION
  Report Type: Spontaneous
  Country: US (occurrence: US)
  Receive Date: 20230427
  Receipt Date: 20230429
  Transmission Date: 20230722
  Serious: No
  Sender: FDA-Public Use
  Company Number: US-UNITED THERAPEUTICS-UNT-2023-002797

PATIENT
  Sex: Female
  Weight: 61.224 kg

DRUGS (4)
  1. REMODULIN [Suspect]
     Active Substance: TREPROSTINIL
     Indication: Pulmonary arterial hypertension
     Dosage: 0.084 ?G/KG, CONTINUING
     Route: 058
  2. REMODULIN [Suspect]
     Active Substance: TREPROSTINIL
     Dosage: UNK, CONTINUING
     Route: 058
     Dates: start: 20150903
  3. GABAPENTIN [Suspect]
     Active Substance: GABAPENTIN
     Indication: Product used for unknown indication
     Dosage: UNK, CONTINUING
     Route: 065
  4. LECITHIN\POLOXAMER 407 [Suspect]
     Active Substance: LECITHIN\POLOXAMER 407
     Indication: Product used for unknown indication
     Route: 065

REACTIONS (15)
  - Nausea [Unknown]
  - Dizziness [Unknown]
  - Diarrhoea [Unknown]
  - Purulent discharge [Unknown]
  - Infusion site infection [Unknown]
  - Illness [Unknown]
  - Vision blurred [Unknown]
  - Dyspnoea [Unknown]
  - Taste disorder [Unknown]
  - Procedural complication [Unknown]
  - Influenza like illness [Unknown]
  - Pruritus allergic [Unknown]
  - Infusion site discharge [Unknown]
  - Infusion site warmth [Unknown]
  - Infusion site induration [Unknown]
